FAERS Safety Report 14376075 (Version 1)
Quarter: 2018Q1

REPORT INFORMATION
  Report Type: Spontaneous
  Country: US (occurrence: US)
  Receive Date: 20180110
  Receipt Date: 20180110
  Transmission Date: 20180509
  Serious: Yes (Other)
  Sender: FDA-Public Use
  Company Number: None

PATIENT
  Age: 65 Year
  Sex: Female
  Weight: 55.79 kg

DRUGS (2)
  1. ALOXI + DEXAMETHASONE [Concomitant]
  2. VARUBI [Suspect]
     Active Substance: ROLAPITANT
     Indication: GASTROINTESTINAL CANCER METASTATIC
     Dosage: ROUTE - IV INFUSION
     Route: 042
     Dates: start: 20171218

REACTIONS (3)
  - Flushing [None]
  - Infusion related reaction [None]
  - Back pain [None]

NARRATIVE: CASE EVENT DATE: 20171218
